FAERS Safety Report 25995395 (Version 2)
Quarter: 2025Q4

REPORT INFORMATION
  Report Type: Spontaneous
  Country: EU (occurrence: EU)
  Receive Date: 20251104
  Receipt Date: 20251110
  Transmission Date: 20260118
  Serious: Yes (Hospitalization)
  Sender: CHEPLAPHARM
  Company Number: None

PATIENT
  Age: 84 Year
  Sex: Male

DRUGS (3)
  1. CAPECITABINE [Suspect]
     Active Substance: CAPECITABINE
     Indication: Pancreatic carcinoma metastatic
     Dosage: CAPECITABINE 500 MG 3 TABLETS (1500 MG) AT 8 A.M. AND 2 TABLETS (1000 MG) AT 8 P.M.
     Route: 048
     Dates: start: 20250924, end: 20250928
  2. PANTOPRAZOLE [Concomitant]
     Active Substance: PANTOPRAZOLE
     Dosage: PANTOPRAZOLE 20 MG 1 TABLET AT 8 A.M.?DAILY DOSE: 1 DOSAGE FORM
     Route: 048
  3. ENOXAPARIN [Concomitant]
     Active Substance: ENOXAPARIN
     Dosage: OXAPARIN SODIUM 4000 IU AT 8 P.M.?DAILY DOSE: 4000 IU (INTERNATIONAL UNIT)
     Route: 058

REACTIONS (1)
  - Gastrointestinal inflammation [Recovered/Resolved]

NARRATIVE: CASE EVENT DATE: 20250928
